FAERS Safety Report 5883130-7 (Version None)
Quarter: 2008Q3

REPORT INFORMATION
  Report Type: 
  Country: None (occurrence: None)
  Receive Date: 20080913
  Receipt Date: 20080828
  Transmission Date: 20090109
  Serious: Yes (Hospitalization)
  Sender: FDA-Public Use
  Company Number: US-ABBOTT-08P-163-0473408-00

PATIENT
  Sex: Female
  Weight: 70.824 kg

DRUGS (15)
  1. HUMIRA [Suspect]
     Indication: RHEUMATOID ARTHRITIS
     Route: 050
     Dates: start: 20070101, end: 20070401
  2. HUMIRA [Suspect]
     Route: 050
     Dates: start: 20070901
  3. METHOTREXATE [Suspect]
     Indication: DRUG USE FOR UNKNOWN INDICATION
  4. ATORVASTATIN CALCIUM [Concomitant]
     Indication: BLOOD CHOLESTEROL INCREASED
     Route: 048
     Dates: start: 20080501
  5. LEFLUNOMIDE [Concomitant]
     Indication: RHEUMATOID ARTHRITIS
     Route: 048
  6. LEVOTHYROXINE SODIUM [Concomitant]
     Indication: THYROID DISORDER
     Dosage: ROUTE: QD
  7. PREDNISONE TAB [Concomitant]
     Indication: RHEUMATOID ARTHRITIS
  8. MONTELUKAST SODIUM [Concomitant]
     Indication: ASTHMA
     Route: 048
  9. MONTELUKAST SODIUM [Concomitant]
     Indication: CHRONIC OBSTRUCTIVE PULMONARY DISEASE
  10. TOLTERODINE TARTRATE [Concomitant]
     Indication: URINARY INCONTINENCE
     Route: 048
     Dates: start: 20070101
  11. CAPTOPRIL [Concomitant]
     Indication: HYPERTENSION
     Route: 048
     Dates: start: 20080501
  12. METFORMIN HCL [Concomitant]
     Indication: DIABETES MELLITUS
     Route: 048
  13. BECLOMETHASONE DIPROPIONATE [Concomitant]
     Indication: SINUS DISORDER
     Route: 045
  14. SERTRALINE [Concomitant]
     Indication: DEPRESSION
     Route: 048
  15. SERTRALINE [Concomitant]
     Indication: ANXIETY

REACTIONS (3)
  - HERPES VIRUS INFECTION [None]
  - HERPES ZOSTER [None]
  - INTERSTITIAL LUNG DISEASE [None]
